FAERS Safety Report 13557459 (Version 1)
Quarter: 2017Q2

REPORT INFORMATION
  Report Type: Spontaneous
  Country: US (occurrence: US)
  Receive Date: 20170517
  Receipt Date: 20170517
  Transmission Date: 20170830
  Serious: Yes (Life-Threatening, Hospitalization, Disabling, Other)
  Sender: FDA-Public Use
  Company Number: None

PATIENT
  Age: 56 Year
  Sex: Male
  Weight: 72 kg

DRUGS (1)
  1. ATORVASTATIN [Suspect]
     Active Substance: ATORVASTATIN
     Indication: BLOOD CHOLESTEROL ABNORMAL
     Dates: start: 20160901, end: 20170201

REACTIONS (9)
  - Productive cough [None]
  - Pollakiuria [None]
  - Lung disorder [None]
  - Pulmonary mass [None]
  - Hilar lymphadenopathy [None]
  - Blood pressure increased [None]
  - Sarcoidosis [None]
  - Hepatic enzyme increased [None]
  - Fear [None]

NARRATIVE: CASE EVENT DATE: 20161001
